FAERS Safety Report 4342450-8 (Version None)
Quarter: 2004Q1

REPORT INFORMATION
  Report Type: 
  Country: None (occurrence: None)
  Receive Date: 20040213
  Receipt Date: 20031024
  Transmission Date: 20041129
  Serious: Yes (Hospitalization)
  Sender: FDA-Public Use
  Company Number: 344619

PATIENT
  Age: 54 Year
  Sex: Male
  Weight: 78 kg

DRUGS (5)
  1. PEGASYS [Suspect]
     Indication: HEPATITIS C
     Dosage: 1 PER WEEK SUBCUTANEOUS
     Route: 058
     Dates: start: 20030412
  2. COPEGUS [Suspect]
     Indication: HEPATITIS C
     Dosage: 4 DOSE FORM DAILY 2 PER DAY ORAL
     Route: 048
     Dates: start: 20030412
  3. GLUCOPHAGE [Concomitant]
  4. ALPHAGAN [Concomitant]
  5. ANTIDEPRESSANT NOS (ANTIDEPRESSANT NOS) [Concomitant]

REACTIONS (9)
  - ANOREXIA [None]
  - ANXIETY [None]
  - BLOOD GLUCOSE DECREASED [None]
  - CHILLS [None]
  - DYSGEUSIA [None]
  - FATIGUE [None]
  - PAIN [None]
  - PYREXIA [None]
  - WEIGHT DECREASED [None]
